FAERS Safety Report 12127262 (Version 1)
Quarter: 2016Q1

REPORT INFORMATION
  Report Type: Spontaneous
  Country: PL (occurrence: PL)
  Receive Date: 20160229
  Receipt Date: 20160229
  Transmission Date: 20160526
  Serious: Yes (Life-Threatening, Hospitalization)
  Sender: FDA-Public Use
  Company Number: PL-B.I. PHARMACEUTICALS,INC./RIDGEFIELD-2015-BI-62447PN

PATIENT
  Age: 64 Year
  Sex: Female
  Weight: 58 kg

DRUGS (11)
  1. ACARD [Concomitant]
     Active Substance: ASPIRIN
     Indication: PRODUCT USED FOR UNKNOWN INDICATION
     Route: 048
  2. LOSARTIC [Concomitant]
     Active Substance: LOSARTAN POTASSIUM
     Indication: PRODUCT USED FOR UNKNOWN INDICATION
     Dosage: STRENGTH: 50
     Route: 048
  3. FRAXIPARINE [Concomitant]
     Active Substance: NADROPARIN CALCIUM
     Indication: PRODUCT USED FOR UNKNOWN INDICATION
     Dosage: STRENGTH: 0.4
     Route: 058
  4. GILOTRIF [Suspect]
     Active Substance: AFATINIB
     Indication: GENE MUTATION
     Dosage: 20 MG
     Route: 065
     Dates: start: 20151105
  5. KETONAL [Concomitant]
     Active Substance: KETOPROFEN
     Indication: PRODUCT USED FOR UNKNOWN INDICATION
     Dosage: 200 MG
     Route: 048
  6. GILOTRIF [Suspect]
     Active Substance: AFATINIB
     Indication: NON-SMALL CELL LUNG CANCER
     Dosage: 40 MG
     Route: 048
     Dates: start: 20151005, end: 20151016
  7. GILOTRIF [Suspect]
     Active Substance: AFATINIB
     Indication: EGFR GENE MUTATION
  8. DUROGESIC [Concomitant]
     Active Substance: FENTANYL
     Indication: BONE PAIN
     Dosage: 600 MCG
     Route: 065
     Dates: start: 20150903
  9. SEVREDOL [Concomitant]
     Active Substance: MORPHINE
     Indication: PRODUCT USED FOR UNKNOWN INDICATION
     Dosage: STRENGTH: 20MG
     Route: 048
     Dates: start: 20150903
  10. GILOTRIF [Suspect]
     Active Substance: AFATINIB
     Indication: ADENOCARCINOMA
  11. BETALOC ZOK [Concomitant]
     Active Substance: METOPROLOL SUCCINATE
     Indication: PRODUCT USED FOR UNKNOWN INDICATION
     Dosage: STRENGTH: 100
     Route: 048

REACTIONS (9)
  - Diarrhoea [Recovered/Resolved]
  - Blood creatinine increased [Recovered/Resolved]
  - Erythema [Unknown]
  - Dehydration [Recovered/Resolved]
  - Renal failure [Recovered/Resolved]
  - Electrolyte imbalance [Recovered/Resolved]
  - Food aversion [Unknown]
  - Hypotension [Unknown]
  - Asthenia [Unknown]

NARRATIVE: CASE EVENT DATE: 20151014
